FAERS Safety Report 9498864 (Version 1)
Quarter: 2013Q3

REPORT INFORMATION
  Report Type: Spontaneous
  Country: US (occurrence: US)
  Receive Date: 20130904
  Receipt Date: 20130904
  Transmission Date: 20140515
  Serious: No
  Sender: FDA-Public Use
  Company Number: US-COVIDIEN/TYCO HEALTHCARE/MALLINCKRODT-T201301535

PATIENT
  Age: 87 Year
  Sex: Male
  Weight: 89.1 kg

DRUGS (6)
  1. MD-GASTROVIEW [Suspect]
     Indication: IMAGING PROCEDURE
     Dosage: 20 ML DIRECTLY INTO BILIARY TREE
     Dates: start: 20130327, end: 20130327
  2. OMNIPAQUE [Suspect]
     Dosage: UNK
  3. FLAGYL                             /00012501/ [Concomitant]
     Dosage: 500 MG Q8
     Route: 042
  4. HEPARIN [Concomitant]
     Dosage: 5000 U Q12
     Route: 058
  5. FAMOTIDINE [Concomitant]
     Dosage: 20 MG QD
  6. CEFEPIME [Concomitant]
     Dosage: 1000 MG Q12
     Route: 042

REACTIONS (3)
  - Incorrect route of drug administration [Recovered/Resolved]
  - Wrong drug administered [Recovered/Resolved]
  - No adverse event [None]
